FAERS Safety Report 16185742 (Version 1)
Quarter: 2019Q2

REPORT INFORMATION
  Report Type: Spontaneous
  Country: US (occurrence: US)
  Receive Date: 20190411
  Receipt Date: 20190411
  Transmission Date: 20190711
  Serious: Yes (Other)
  Sender: FDA-Public Use
  Company Number: US-B.I. PHARMACEUTICALS,INC./RIDGEFIELD-2019-BI-015841

PATIENT
  Sex: Male
  Weight: 97.52 kg

DRUGS (7)
  1. CARISOPRODOL. [Concomitant]
     Active Substance: CARISOPRODOL
     Indication: PAIN
     Dosage: 350 MG, ONE, FOUR TIMES A DAY BY MOUTH. HAS BEEN TAKING IT 3 TIMES A DAY.
     Route: 048
     Dates: start: 2014
  2. MOBIC [Suspect]
     Active Substance: MELOXICAM
     Indication: PRODUCT USED FOR UNKNOWN INDICATION
     Route: 065
  3. CELECOXIB. [Concomitant]
     Active Substance: CELECOXIB
     Indication: INFLAMMATORY PAIN
     Route: 048
  4. FLECTOR [Concomitant]
     Active Substance: DICLOFENAC EPOLAMINE
     Indication: MUSCULOSKELETAL PAIN
     Dosage: 1.3% ONCE EVERY 12 HOURS. APPLY ONE TO SHOULDER AND ONE TO BACK.
     Route: 061
     Dates: start: 20190326
  5. CELECOXIB. [Concomitant]
     Active Substance: CELECOXIB
     Indication: ARTHRITIS
  6. HYDROCODONE/ACETAMINOPHEN [Concomitant]
     Active Substance: ACETAMINOPHEN\HYDROCODONE
     Indication: PAIN
     Dosage: UNIT DOSE: 10/325
     Route: 065
     Dates: start: 2014
  7. LIDOCAINE. [Suspect]
     Active Substance: LIDOCAINE
     Indication: MUSCULOSKELETAL PAIN
     Dosage: FORM OF ADMIN: PATCH; FREQUENCY: 5% PATCH; 700MG, 50MG PER GRAM ADHESIVE.
     Route: 065
     Dates: start: 2014, end: 20190326

REACTIONS (2)
  - Gastric perforation [Unknown]
  - Therapeutic product effect incomplete [Unknown]
